FAERS Safety Report 9674398 (Version 3)
Quarter: 2013Q4

REPORT INFORMATION
  Report Type: Spontaneous
  Country: US (occurrence: US)
  Receive Date: 20131107
  Receipt Date: 20131223
  Transmission Date: 20140711
  Serious: No
  Sender: FDA-Public Use
  Company Number: US-BIOGENIDEC-2013BI103891

PATIENT
  Age: 51 Year
  Sex: Female

DRUGS (3)
  1. AVONEX [Suspect]
     Indication: MULTIPLE SCLEROSIS
     Route: 030
     Dates: start: 20000623
  2. AVONEX [Suspect]
     Indication: MULTIPLE SCLEROSIS
     Route: 030
     Dates: end: 20120906
  3. AVONEX [Suspect]
     Indication: MULTIPLE SCLEROSIS
     Route: 030
     Dates: start: 20120906

REACTIONS (13)
  - Injection site haemorrhage [Recovered/Resolved]
  - Panic reaction [Not Recovered/Not Resolved]
  - Abnormal sensation in eye [Recovered/Resolved]
  - VIIth nerve paralysis [Recovered/Resolved]
  - Dyskinesia [Unknown]
  - Incorrect route of drug administration [Recovered/Resolved]
  - Hypoaesthesia oral [Recovered/Resolved]
  - Underweight [Unknown]
  - Fear [Unknown]
  - Headache [Recovered/Resolved]
  - Dyspnoea [Not Recovered/Not Resolved]
  - Hypersensitivity [Recovered/Resolved]
  - Injection site pain [Recovered/Resolved]
